FAERS Safety Report 10207109 (Version 1)
Quarter: 2014Q2

REPORT INFORMATION
  Report Type: Spontaneous
  Country: US (occurrence: None)
  Receive Date: 20140529
  Receipt Date: 20140529
  Transmission Date: 20141212
  Serious: No
  Sender: FDA-Public Use
  Company Number: None

PATIENT
  Age: 36 Year
  Sex: Female

DRUGS (2)
  1. AUBAGIO [Suspect]
     Indication: MULTIPLE SCLEROSIS
     Dosage: 1 TABLET
     Route: 048
     Dates: start: 20140316, end: 20140505
  2. GILENYA [Concomitant]

REACTIONS (5)
  - Scab [None]
  - Blister [None]
  - Rash papular [None]
  - Rash pruritic [None]
  - Inflammation [None]
